FAERS Safety Report 7265825-6 (Version None)
Quarter: 2011Q1

REPORT INFORMATION
  Report Type: 
  Country: None (occurrence: None)
  Receive Date: 20110131
  Receipt Date: 20110127
  Transmission Date: 20110831
  Serious: Yes (Other)
  Sender: FDA-Public Use
  Company Number: A0885904A

PATIENT
  Age: 56 Year
  Sex: Male

DRUGS (16)
  1. PSYLLIUM HUSK [Concomitant]
  2. LAMICTAL [Suspect]
     Indication: BIPOLAR DISORDER
     Dosage: 50MG PER DAY
     Route: 048
     Dates: start: 20100901
  3. MULTI-VITAMIN [Concomitant]
  4. COQ10 [Concomitant]
  5. BUPROPION [Concomitant]
  6. SPIRIVA [Concomitant]
  7. AZILECT [Concomitant]
  8. NAMENDA [Concomitant]
  9. NIACIN [Concomitant]
  10. LODOSYN [Concomitant]
  11. FISH OIL [Concomitant]
  12. SERTRALINE [Concomitant]
  13. CARVEDILOL [Concomitant]
  14. GALANTAMINE HYDROBROMIDE [Concomitant]
  15. RED YEAST RICE [Concomitant]
  16. MIRALAX [Concomitant]

REACTIONS (9)
  - GAIT DISTURBANCE [None]
  - BALANCE DISORDER [None]
  - AMNESIA [None]
  - PARKINSON'S DISEASE [None]
  - FREEZING PHENOMENON [None]
  - COGNITIVE DISORDER [None]
  - COORDINATION ABNORMAL [None]
  - TREMOR [None]
  - JOINT STIFFNESS [None]
